FAERS Safety Report 9842762 (Version 5)
Quarter: 2014Q1

REPORT INFORMATION
  Report Type: Not Available
  Country: IL (occurrence: IL)
  Receive Date: 20140124
  Receipt Date: 20140214
  Transmission Date: 20141002
  Serious: Yes (Life-Threatening, Hospitalization)
  Sender: FDA-Public Use
  Company Number: IL-ONYX-2014-0149

PATIENT
  Age: 72 Year
  Sex: Female
  Weight: 43 kg

DRUGS (1)
  1. KYPROLIS [Suspect]
     Indication: PLASMA CELL MYELOMA
     Route: 042
     Dates: start: 20140116, end: 20140117

REACTIONS (5)
  - Pulmonary oedema [Recovered/Resolved]
  - Cardiac failure congestive [Recovered/Resolved]
  - Myocardial infarction [Recovered/Resolved]
  - Pneumonia [Recovered/Resolved]
  - Thrombocytopenia [Recovering/Resolving]
